FAERS Safety Report 7946629-5 (Version None)
Quarter: 2011Q4

REPORT INFORMATION
  Report Type: 
  Country: None (occurrence: None)
  Receive Date: 20111129
  Receipt Date: 20111114
  Transmission Date: 20120403
  Serious: Yes (Other)
  Sender: FDA-Public Use
  Company Number: US-JUTA GMBH-2011-19715

PATIENT
  Age: 45 Year
  Sex: Male

DRUGS (2)
  1. LEVETIRACETAM [Suspect]
     Dosage: 500 MG, BID
  2. LEVETIRACETAM [Suspect]
     Indication: CONVULSION PROPHYLAXIS
     Dosage: 3000 MG, DAILY

REACTIONS (1)
  - TUBULOINTERSTITIAL NEPHRITIS [None]
